FAERS Safety Report 5285783-3 (Version None)
Quarter: 2007Q1

REPORT INFORMATION
  Report Type: 
  Country: None (occurrence: None)
  Receive Date: 20070126
  Receipt Date: 20061127
  Transmission Date: 20070707
  Serious: No
  Sender: FDA-Public Use
  Company Number: 2006CT001057

PATIENT
  Age: 70 Year
  Sex: Female
  Weight: 65.7716 kg

DRUGS (8)
  1. VENTAVIS [Suspect]
     Indication: PULMONARY HYPERTENSION
     Dosage: SEE IMAGE
     Route: 055
     Dates: start: 20060728, end: 20061117
  2. VENTAVIS [Suspect]
     Indication: PULMONARY HYPERTENSION
     Dosage: SEE IMAGE
     Route: 055
     Dates: start: 20061117, end: 20061120
  3. NEXIUM [Concomitant]
  4. ATORVASTATIN CALCIUM [Concomitant]
  5. TRACLEER [Concomitant]
  6. SILDENAFIL CITRATE [Concomitant]
  7. PROCARDIA [Concomitant]
  8. ESZOPICLONE [Concomitant]

REACTIONS (4)
  - DYSPNOEA [None]
  - GAIT DISTURBANCE [None]
  - HYPERVENTILATION [None]
  - OEDEMA PERIPHERAL [None]
